FAERS Safety Report 19259732 (Version 2)
Quarter: 2021Q2

REPORT INFORMATION
  Report Type: Spontaneous
  Country: CA (occurrence: CA)
  Receive Date: 20210514
  Receipt Date: 20210514
  Transmission Date: 20210717
  Serious: No
  Sender: FDA-Public Use
  Company Number: CA-CIPHER-2021-CA-001026

PATIENT
  Age: 42 Year
  Sex: Female

DRUGS (7)
  1. SUMATRIPTAN. [Suspect]
     Active Substance: SUMATRIPTAN
     Indication: PRODUCT USED FOR UNKNOWN INDICATION
     Route: 065
  2. ELETRIPTAN HYDROBROMIDE. [Concomitant]
     Active Substance: ELETRIPTAN HYDROBROMIDE
     Indication: PRODUCT USED FOR UNKNOWN INDICATION
  3. TRAMADOL HYDROCHLORIDE. [Suspect]
     Active Substance: TRAMADOL HYDROCHLORIDE
     Indication: MIGRAINE
     Route: 065
  4. AIMOVIG [Suspect]
     Active Substance: ERENUMAB-AOOE
     Indication: MIGRAINE
     Route: 065
  5. FROVATRIPTAN. [Concomitant]
     Active Substance: FROVATRIPTAN
     Indication: PRODUCT USED FOR UNKNOWN INDICATION
     Route: 065
  6. HYDROMORPHONE [Suspect]
     Active Substance: HYDROMORPHONE
     Indication: MIGRAINE
     Route: 065
  7. CAMBIA [Concomitant]
     Active Substance: DICLOFENAC POTASSIUM
     Indication: PRODUCT USED FOR UNKNOWN INDICATION

REACTIONS (6)
  - Migraine [Unknown]
  - Blood pressure increased [Unknown]
  - Hypoaesthesia [Unknown]
  - Liver disorder [Unknown]
  - Sinus disorder [Unknown]
  - Visual impairment [Unknown]
